FAERS Safety Report 9692711 (Version 2)
Quarter: 2014Q1

REPORT INFORMATION
  Report Type: Spontaneous
  Country: DE (occurrence: DE)
  Receive Date: 20131118
  Receipt Date: 20140213
  Transmission Date: 20141002
  Serious: Yes (Hospitalization)
  Sender: FDA-Public Use
  Company Number: PHHY2013DE130635

PATIENT
  Sex: Female

DRUGS (1)
  1. MERIMONO [Suspect]
     Indication: HORMONE REPLACEMENT THERAPY
     Dosage: 2 MG, QD
     Route: 048
     Dates: start: 201301

REACTIONS (4)
  - Arterial thrombosis [Recovered/Resolved]
  - Gait disturbance [Recovered/Resolved]
  - Device occlusion [Recovered/Resolved]
  - Dilatation atrial [Unknown]
